FAERS Safety Report 8266966-7 (Version None)
Quarter: 2012Q2

REPORT INFORMATION
  Report Type: 
  Country: None (occurrence: None)
  Receive Date: 20120409
  Receipt Date: 20120403
  Transmission Date: 20120825
  Serious: No
  Sender: FDA-Public Use
  Company Number: US-PFIZER INC-2012084502

PATIENT
  Sex: Male

DRUGS (2)
  1. DEPO-TESTOSTERONE [Suspect]
     Indication: HYPOGONADISM
     Dosage: UNK, EVERY OTHER WEEK
     Route: 030
     Dates: start: 20111220
  2. VITAMIN B-12 [Concomitant]
     Dosage: UNK

REACTIONS (3)
  - POOR QUALITY DRUG ADMINISTERED [None]
  - INJECTION SITE PAIN [None]
  - BLOOD TESTOSTERONE ABNORMAL [None]
